FAERS Safety Report 7274288-6 (Version None)
Quarter: 2011Q1

REPORT INFORMATION
  Report Type: 
  Country: None (occurrence: None)
  Receive Date: 20110204
  Receipt Date: 20110128
  Transmission Date: 20110831
  Serious: Yes (Other)
  Sender: FDA-Public Use
  Company Number: US-TEVA-265166USA

PATIENT
  Sex: Female
  Weight: 104.1 kg

DRUGS (3)
  1. LITHIUM [Suspect]
  2. PIMOZIDE TABLETS [Suspect]
  3. PRISTIQ [Suspect]
     Dosage: 50 MG. 1X/DAY
     Route: 048
     Dates: start: 20100101

REACTIONS (8)
  - SUICIDAL IDEATION [None]
  - WEIGHT DECREASED [None]
  - NIGHTMARE [None]
  - SUICIDE ATTEMPT [None]
  - CRYING [None]
  - AGITATION [None]
  - DYSKINESIA [None]
  - DEPRESSED MOOD [None]
